FAERS Safety Report 4873996-1 (Version None)
Quarter: 2006Q1

REPORT INFORMATION
  Report Type: 
  Country: None (occurrence: None)
  Receive Date: 20060104
  Receipt Date: 20051219
  Transmission Date: 20060701
  Serious: Yes (Other)
  Sender: FDA-Public Use
  Company Number: 05-000955

PATIENT
  Age: 50 Year
  Sex: Female
  Weight: 49.9 kg

DRUGS (13)
  1. DORYX [Suspect]
     Indication: LYME DISEASE
     Dosage: 100 MG BID ORAL
     Route: 048
     Dates: start: 20051001, end: 20051217
  2. SUPRAX ^KLINGE^ (CEFIXIME TRIHYDRATE) [Concomitant]
  3. ALDACTONE [Concomitant]
  4. ZANTAC [Concomitant]
  5. RESTASIS [Concomitant]
  6. CALCIUM GLUCONATE [Concomitant]
  7. MAGNESIUM [Concomitant]
  8. MULTIVITAMINS (PANTHENOL,ASCORBIC ACID, ERGOCALCIFEROL, FOLIC ACID, NI [Concomitant]
  9. VITAMIN B COMPLEX CAP [Concomitant]
  10. HYDROEYE VITAMIN [Concomitant]
  11. SYNTHROID [Concomitant]
  12. BI-ESTROGEN [Concomitant]
  13. PROGESTERONE CREAM [Concomitant]

REACTIONS (5)
  - ABDOMINAL DISCOMFORT [None]
  - CHEST PAIN [None]
  - DYSPHAGIA [None]
  - GASTROOESOPHAGEAL REFLUX DISEASE [None]
  - PHARMACEUTICAL PRODUCT COMPLAINT [None]
